FAERS Safety Report 13455495 (Version 2)
Quarter: 2017Q2

REPORT INFORMATION
  Report Type: Other
  Country: IL (occurrence: IL)
  Receive Date: 20170418
  Receipt Date: 20170512
  Transmission Date: 20170830
  Serious: Yes (Death, Hospitalization)
  Sender: FDA-Public Use
  Company Number: IL-UNITED THERAPEUTICS-UNT-2017-005483

PATIENT
  Age: 59 Year
  Sex: Male

DRUGS (2)
  1. REMODULIN [Suspect]
     Active Substance: TREPROSTINIL
     Dosage: 2.4 UNIT, QH
     Route: 058
     Dates: start: 20170413
  2. REMODULIN [Suspect]
     Active Substance: TREPROSTINIL
     Indication: PULMONARY ARTERIAL HYPERTENSION
     Dosage: 4.5 UNIT, QH
     Route: 058
     Dates: end: 20170413

REACTIONS (2)
  - Mechanical ventilation [Fatal]
  - Asthenia [Unknown]

NARRATIVE: CASE EVENT DATE: 20170413
